FAERS Safety Report 14907160 (Version 1)
Quarter: 2018Q2

REPORT INFORMATION
  Report Type: Report from Study
  Country: US (occurrence: US)
  Receive Date: 20180517
  Receipt Date: 20180517
  Transmission Date: 20180711
  Serious: Yes (Hospitalization)
  Sender: FDA-Public Use
  Company Number: US-BIOGEN-2018BI00576837

PATIENT
  Sex: Female

DRUGS (1)
  1. TECFIDERA [Suspect]
     Active Substance: DIMETHYL FUMARATE
     Indication: MULTIPLE SCLEROSIS
     Route: 065

REACTIONS (8)
  - Hypoacusis [Unknown]
  - Gastrointestinal disorder [Unknown]
  - Malaise [Unknown]
  - Fall [Recovered/Resolved]
  - Pain [Unknown]
  - Mobility decreased [Unknown]
  - Fatigue [Unknown]
  - Drug withdrawal syndrome [Unknown]
